FAERS Safety Report 5367534-7 (Version None)
Quarter: 2007Q2

REPORT INFORMATION
  Report Type: 
  Country: None (occurrence: None)
  Receive Date: 20070622
  Receipt Date: 20061213
  Transmission Date: 20071010
  Serious: No
  Sender: FDA-Public Use
  Company Number: US-ASTRAZENECA-2006UW27726

PATIENT
  Age: 4 Year
  Sex: Male

DRUGS (3)
  1. PULMICORT RESPULES [Suspect]
     Indication: ASTHMA
     Route: 055
  2. PULMICORT RESPULES [Suspect]
     Route: 055
     Dates: start: 20060901
  3. XOPENEX [Concomitant]

REACTIONS (3)
  - COUGH [None]
  - EAR INFECTION [None]
  - RHINORRHOEA [None]
